FAERS Safety Report 5693058-3 (Version None)
Quarter: 2008Q2

REPORT INFORMATION
  Report Type: 
  Country: None (occurrence: None)
  Receive Date: 20080402
  Receipt Date: 20080402
  Transmission Date: 20081010
  Serious: Yes (Hospitalization)
  Sender: FDA-Public Use
  Company Number: None

PATIENT
  Age: 59 Year
  Sex: Female
  Weight: 63.5036 kg

DRUGS (1)
  1. MOBIC [Suspect]
     Indication: ARTHRITIS
     Dosage: 25MG, IDAILY PO
     Route: 048
     Dates: start: 20050401, end: 20051126

REACTIONS (7)
  - ASTHENIA [None]
  - MALAISE [None]
  - ORAL INTAKE REDUCED [None]
  - PAIN [None]
  - REFUSAL OF TREATMENT BY PATIENT [None]
  - VOMITING [None]
  - WEIGHT DECREASED [None]
